FAERS Safety Report 8598244-0 (Version None)
Quarter: 2012Q3

REPORT INFORMATION
  Report Type: 
  Country: None (occurrence: None)
  Receive Date: 20120816
  Receipt Date: 20120808
  Transmission Date: 20120928
  Serious: Yes (Other)
  Sender: FDA-Public Use
  Company Number: DE-B.I. PHARMACEUTICALS,INC./RIDGEFIELD-2012-DE-01904DE

PATIENT
  Sex: Male
  Weight: 93 kg

DRUGS (5)
  1. IRBESARTAN AND HYDROCHLOROTHIAZIDE [Concomitant]
     Dosage: 150 MG
  2. TORSEMIDE [Concomitant]
     Dosage: 5 MG
  3. AMIODARONE HCL [Concomitant]
     Dosage: 600 MG
     Dates: start: 20120530
  4. PRADAXA [Suspect]
     Indication: ATRIAL FIBRILLATION
     Dosage: 300 MG
     Dates: start: 20120530, end: 20120806
  5. BISOPROLOL FUMARATE [Concomitant]
     Dosage: 10 MG

REACTIONS (1)
  - RENAL FUNCTION TEST ABNORMAL [None]
